FAERS Safety Report 24056296 (Version 1)
Quarter: 2024Q3

REPORT INFORMATION
  Report Type: Spontaneous
  Country: US (occurrence: None)
  Receive Date: 20240705
  Receipt Date: 20240705
  Transmission Date: 20241017
  Serious: Yes (Hospitalization, Other)
  Sender: ASTRAZENECA
  Company Number: 2024A150062

PATIENT
  Sex: Male

DRUGS (1)
  1. BYDUREON BCISE [Suspect]
     Active Substance: EXENATIDE
     Dosage: 2.0MG UNKNOWN
     Route: 058

REACTIONS (6)
  - Somnolence [Unknown]
  - Diabetes mellitus [Unknown]
  - Device use issue [Unknown]
  - Needle issue [Unknown]
  - Device defective [Unknown]
  - Incorrect dose administered by device [Unknown]
